FAERS Safety Report 11145901 (Version 1)
Quarter: 2015Q2

REPORT INFORMATION
  Report Type: Spontaneous
  Country: US (occurrence: None)
  Receive Date: 20150527
  Receipt Date: 20150527
  Transmission Date: 20150821
  Serious: Yes (Life-Threatening, Other)
  Sender: FDA-Public Use
  Company Number: None

PATIENT
  Age: 33 Year
  Sex: Male
  Weight: 116.12 kg

DRUGS (5)
  1. FLOVENT [Concomitant]
     Active Substance: FLUTICASONE PROPIONATE
  2. HYDROCODONE [Concomitant]
     Active Substance: HYDROCODONE
  3. TESTOSTERONE. [Concomitant]
     Active Substance: TESTOSTERONE
  4. PIOGLITAZONE [Suspect]
     Active Substance: PIOGLITAZONE
     Indication: DIABETES MELLITUS
     Route: 048
     Dates: start: 20150423, end: 20150526
  5. PROAIR HFA [Concomitant]
     Active Substance: ALBUTEROL SULFATE

REACTIONS (6)
  - Suicidal ideation [None]
  - Pain in extremity [None]
  - Tunnel vision [None]
  - Palpitations [None]
  - Dizziness [None]
  - Insomnia [None]

NARRATIVE: CASE EVENT DATE: 20150513
